FAERS Safety Report 18878783 (Version 1)
Quarter: 2021Q1

REPORT INFORMATION
  Report Type: Spontaneous
  Country: US (occurrence: US)
  Receive Date: 20210211
  Receipt Date: 20210211
  Transmission Date: 20210420
  Serious: Yes (Life-Threatening, Hospitalization)
  Sender: FDA-Public Use
  Company Number: None

PATIENT
  Age: 64 Year
  Sex: Female
  Weight: 138 kg

DRUGS (4)
  1. ANAKINRA [Suspect]
     Active Substance: ANAKINRA
     Indication: COVID-19
     Route: 042
     Dates: start: 20201128, end: 20201202
  2. IVIG 30 G [Concomitant]
     Dates: start: 20201128, end: 20201130
  3. TOCILIZUMAB. [Suspect]
     Active Substance: TOCILIZUMAB
     Indication: COVID-19
     Route: 041
     Dates: start: 20201125, end: 20201127
  4. METHYPREDNISOLONE (VARIOUS) [Concomitant]
     Dates: start: 20201125, end: 20201218

REACTIONS (3)
  - Bronchopulmonary aspergillosis [None]
  - Lung disorder [None]
  - Septic shock [None]

NARRATIVE: CASE EVENT DATE: 20210205
